FAERS Safety Report 12140746 (Version 1)
Quarter: 2016Q1

REPORT INFORMATION
  Report Type: Spontaneous
  Country: US (occurrence: None)
  Receive Date: 20160302
  Receipt Date: 20160302
  Transmission Date: 20160526
  Serious: No
  Sender: FDA-Public Use
  Company Number: None

PATIENT
  Age: 55 Year
  Sex: Female

DRUGS (10)
  1. FASLODEX [Concomitant]
     Active Substance: FULVESTRANT
  2. LAMISIL [Concomitant]
     Active Substance: TERBINAFINE HYDROCHLORIDE
  3. DULOXETINE. [Concomitant]
     Active Substance: DULOXETINE
  4. BUPROPION. [Concomitant]
     Active Substance: BUPROPION
  5. TRIAMT/HOTZ [Concomitant]
  6. POT CL [Concomitant]
  7. L-THYROXINE [Concomitant]
     Active Substance: LEVOTHYROXINE
  8. IBRANCE [Suspect]
     Active Substance: PALBOCICLIB
     Indication: BREAST CANCER
     Route: 048
     Dates: start: 20151218, end: 20160301
  9. XGAVA [Concomitant]
  10. ABILIFY [Concomitant]
     Active Substance: ARIPIPRAZOLE

REACTIONS (2)
  - Therapy cessation [None]
  - Drug ineffective [None]

NARRATIVE: CASE EVENT DATE: 20160301
